FAERS Safety Report 17460522 (Version 2)
Quarter: 2020Q2

REPORT INFORMATION
  Report Type: Report from Study
  Country: None (occurrence: US)
  Receive Date: 20200225
  Receipt Date: 20200508
  Transmission Date: 20200713
  Serious: Yes (Other)
  Sender: FDA-Public Use
  Company Number: US-ABBVIE-19K-163-3007263-00

PATIENT
  Sex: Female

DRUGS (2)
  1. HUMIRA [Suspect]
     Active Substance: ADALIMUMAB
     Route: 058
     Dates: start: 2020
  2. HUMIRA [Suspect]
     Active Substance: ADALIMUMAB
     Indication: RHEUMATOID ARTHRITIS
     Route: 058
     Dates: start: 20191015, end: 202001

REACTIONS (18)
  - Joint stiffness [Recovered/Resolved]
  - Muscle spasms [Recovered/Resolved]
  - Pain in extremity [Not Recovered/Not Resolved]
  - Back pain [Not Recovered/Not Resolved]
  - Gait disturbance [Unknown]
  - Depression [Unknown]
  - Anxiety [Not Recovered/Not Resolved]
  - Impaired self-care [Not Recovered/Not Resolved]
  - Procedural pain [Not Recovered/Not Resolved]
  - Muscle spasms [Unknown]
  - Musculoskeletal disorder [Not Recovered/Not Resolved]
  - Carpal tunnel syndrome [Unknown]
  - Arthralgia [Recovered/Resolved]
  - Nasopharyngitis [Recovered/Resolved]
  - Musculoskeletal pain [Not Recovered/Not Resolved]
  - Musculoskeletal stiffness [Unknown]
  - Loss of personal independence in daily activities [Not Recovered/Not Resolved]
  - Influenza [Recovered/Resolved]

NARRATIVE: CASE EVENT DATE: 2019
